FAERS Safety Report 5586543-6 (Version None)
Quarter: 2008Q1

REPORT INFORMATION
  Report Type: 
  Country: None (occurrence: None)
  Receive Date: 20080110
  Receipt Date: 20080102
  Transmission Date: 20080703
  Serious: Yes (Death)
  Sender: FDA-Public Use
  Company Number: US-AVENTIS-200810091EU

PATIENT
  Age: 65 Year
  Sex: Male

DRUGS (14)
  1. ENOXAPARIN [Suspect]
     Indication: THROMBOSIS PROPHYLAXIS
     Route: 058
     Dates: start: 20071114, end: 20071120
  2. ASPIRIN [Concomitant]
     Dates: start: 19980121, end: 20071207
  3. ISOSORBIDE MONONITRATE [Concomitant]
     Dates: start: 20010614, end: 20071207
  4. SPIRONOLACTONE [Concomitant]
     Dates: start: 20050414, end: 20071207
  5. PERINDOPRIL [Concomitant]
     Dates: start: 20071127, end: 20071207
  6. FUROSEMIDE [Concomitant]
     Dates: start: 20070926, end: 20071207
  7. DIGOXIN [Concomitant]
     Dates: start: 20031222, end: 20071207
  8. MAGNESIUM OXIDE [Concomitant]
     Dates: start: 20071117, end: 20071207
  9. HYDROXYCHLOROQUINE [Concomitant]
     Dates: start: 20060829, end: 20071207
  10. MELOXICAM [Concomitant]
     Dates: start: 20060829, end: 20071207
  11. FOLIC ACID [Concomitant]
     Dates: start: 20040528, end: 20071207
  12. METHYLPREDNISOLONE [Concomitant]
     Dates: start: 20041206, end: 20071207
  13. SOFALCONE [Concomitant]
     Dates: start: 20041206, end: 20071207
  14. MIZORIBINE [Concomitant]
     Dates: start: 20070914, end: 20071207

REACTIONS (1)
  - CARDIAC FAILURE [None]
